FAERS Safety Report 11681868 (Version 1)
Quarter: 2015Q4

REPORT INFORMATION
  Report Type: Spontaneous
  Country: None (occurrence: None)
  Receive Date: 20151028
  Receipt Date: 20151028
  Transmission Date: 20160304
  Serious: No
  Sender: FDA-Public Use
  Company Number: None

PATIENT
  Age: 72 Year
  Sex: Female
  Weight: 59.88 kg

DRUGS (3)
  1. VITAMINS AND MINERALS [Concomitant]
  2. BRILINTA [Suspect]
     Active Substance: TICAGRELOR
     Indication: VASCULAR DEVICE USER
     Route: 048
     Dates: start: 20151005, end: 20151023
  3. BRILINTA [Suspect]
     Active Substance: TICAGRELOR
     Indication: MYOCARDIAL INFARCTION
     Route: 048
     Dates: start: 20151005, end: 20151023

REACTIONS (5)
  - Dizziness [None]
  - Asthenia [None]
  - Dyspnoea [None]
  - Influenza like illness [None]
  - Blood pressure decreased [None]

NARRATIVE: CASE EVENT DATE: 20151023
